FAERS Safety Report 5178339-4 (Version None)
Quarter: 2006Q4

REPORT INFORMATION
  Report Type: 
  Country: None (occurrence: None)
  Receive Date: 20061208
  Receipt Date: 20061127
  Transmission Date: 20070319
  Serious: Yes (Other)
  Sender: FDA-Public Use
  Company Number: 061128-0001057

PATIENT
  Sex: Male

DRUGS (1)
  1. INDOMETHACIN [Suspect]
     Indication: DRUG USE FOR UNKNOWN INDICATION
     Dosage: IV
     Route: 042

REACTIONS (4)
  - HAEMORRHAGE INTRACRANIAL [None]
  - HEPATIC HAEMORRHAGE [None]
  - HYDROCEPHALUS [None]
  - INFANTILE SPASMS [None]
